FAERS Safety Report 17481696 (Version 1)
Quarter: 2020Q1

REPORT INFORMATION
  Report Type: Report from Study
  Country: None (occurrence: US)
  Receive Date: 20200302
  Receipt Date: 20200302
  Transmission Date: 20200409
  Serious: Yes (Other)
  Sender: FDA-Public Use
  Company Number: US-ABBVIE-20K-163-3294976-00

PATIENT
  Age: 69 Year
  Sex: Female

DRUGS (1)
  1. HUMIRA [Suspect]
     Active Substance: ADALIMUMAB
     Indication: RHEUMATOID ARTHRITIS
     Route: 058
     Dates: end: 201912

REACTIONS (5)
  - Loss of consciousness [Unknown]
  - Nasopharyngitis [Recovering/Resolving]
  - Influenza [Recovered/Resolved]
  - Asthenia [Unknown]
  - Lacrimation increased [Unknown]

NARRATIVE: CASE EVENT DATE: 201912
